FAERS Safety Report 5382269-2 (Version None)
Quarter: 2007Q3

REPORT INFORMATION
  Report Type: 
  Country: None (occurrence: None)
  Receive Date: 20070709
  Receipt Date: 20070628
  Transmission Date: 20080115
  Serious: No
  Sender: FDA-Public Use
  Company Number: GB-PFIZER INC-2007045423

PATIENT
  Age: 72 Year
  Sex: Female
  Weight: 81 kg

DRUGS (5)
  1. ISTIN [Suspect]
     Indication: HYPERTENSION
     Dosage: FREQ:DAILY : EVERY DAY
     Route: 048
  2. GRAPEFRUIT JUICE [Suspect]
  3. BENDROFLUMETHIAZIDE [Concomitant]
     Indication: HYPERTENSION
     Route: 048
  4. LEVOTHYROXINE SODIUM [Concomitant]
     Indication: HYPOTHYROIDISM
     Route: 048
  5. LOSARTAN POTASSIUM [Concomitant]
     Indication: HYPERTENSION
     Route: 048

REACTIONS (2)
  - BLOOD PRESSURE INCREASED [None]
  - FOOD INTERACTION [None]
